FAERS Safety Report 8425769-0 (Version None)
Quarter: 2012Q2

REPORT INFORMATION
  Report Type: 
  Country: None (occurrence: None)
  Receive Date: 20120611
  Receipt Date: 20120530
  Transmission Date: 20120825
  Serious: Yes (Hospitalization, Other)
  Sender: FDA-Public Use
  Company Number: US-SANOFI-AVENTIS-2012SA031944

PATIENT
  Age: 66 Year
  Sex: Female
  Weight: 54.3 kg

DRUGS (8)
  1. CYCLOSPORINE [Concomitant]
     Route: 048
     Dates: start: 20120201
  2. URSODIOL [Concomitant]
     Route: 048
  3. PREDNISONE TAB [Concomitant]
     Route: 048
  4. LOVENOX [Suspect]
     Route: 058
     Dates: start: 20120306, end: 20120311
  5. SELECTIVE IMMUNOSUPPRESSIVE AGENTS [Suspect]
     Route: 042
     Dates: start: 20120215, end: 20120307
  6. AMLODIPINE [Concomitant]
     Indication: HYPERTENSION
     Route: 048
     Dates: start: 20120201
  7. LOVENOX [Suspect]
     Route: 058
     Dates: start: 20120216, end: 20120306
  8. PROTONIX [Concomitant]
     Route: 048
     Dates: start: 20120201

REACTIONS (10)
  - RENAL FAILURE [None]
  - PAIN IN EXTREMITY [None]
  - MEDICATION ERROR [None]
  - IMMOBILE [None]
  - THROMBOCYTOPENIA [None]
  - NO THERAPEUTIC RESPONSE [None]
  - HAEMATOMA [None]
  - SWELLING [None]
  - INAPPROPRIATE SCHEDULE OF DRUG ADMINISTRATION [None]
  - DRUG DISPENSING ERROR [None]
